FAERS Safety Report 7029744-2 (Version None)
Quarter: 2010Q4

REPORT INFORMATION
  Report Type: 
  Country: None (occurrence: None)
  Receive Date: 20101005
  Receipt Date: 20101005
  Transmission Date: 20110411
  Serious: Yes (Hospitalization)
  Sender: FDA-Public Use
  Company Number: None

PATIENT
  Age: 57 Year
  Sex: Female
  Weight: 70.7611 kg

DRUGS (1)
  1. LEVAQUIN [Suspect]
     Indication: BRONCHITIS
     Dosage: 750 MG ONCE A DAY PO
     Route: 048
     Dates: start: 20100921, end: 20100929

REACTIONS (5)
  - GAIT DISTURBANCE [None]
  - GROIN PAIN [None]
  - PAIN IN EXTREMITY [None]
  - TENDON INJURY [None]
  - TENDONITIS [None]
